FAERS Safety Report 17025161 (Version 1)
Quarter: 2019Q4

REPORT INFORMATION
  Report Type: Spontaneous
  Country: US (occurrence: US)
  Receive Date: 20191113
  Receipt Date: 20191113
  Transmission Date: 20200122
  Serious: Yes (Death)
  Sender: FDA-Public Use
  Company Number: US-UNITED THERAPEUTICS-UNT-2019-018844

PATIENT
  Age: 73 Year
  Sex: Female

DRUGS (1)
  1. REMODULIN [Suspect]
     Active Substance: TREPROSTINIL
     Indication: PULMONARY ARTERIAL HYPERTENSION
     Dosage: 0.0024 ?G/KG, CONTINUING
     Route: 058
     Dates: start: 20190920

REACTIONS (2)
  - Aspiration [Fatal]
  - Hypoxia [Fatal]

NARRATIVE: CASE EVENT DATE: 20191003
